FAERS Safety Report 16584440 (Version 1)
Quarter: 2019Q3

REPORT INFORMATION
  Report Type: Spontaneous
  Country: US (occurrence: US)
  Receive Date: 20190717
  Receipt Date: 20190717
  Transmission Date: 20191004
  Serious: Yes (Other)
  Sender: FDA-Public Use
  Company Number: US-BAYER-2019-130096

PATIENT
  Age: 17 Year
  Sex: Male

DRUGS (1)
  1. KOGENATE FS [Suspect]
     Active Substance: ANTIHEMOPHILIC FACTOR, HUMAN RECOMBINANT
     Indication: FACTOR VIII DEFICIENCY
     Dosage: 2500 U, TIW
     Dates: start: 20171211

REACTIONS (3)
  - Muscle haemorrhage [Recovered/Resolved]
  - Contusion [Recovering/Resolving]
  - Post-traumatic pain [None]

NARRATIVE: CASE EVENT DATE: 20190705
